FAERS Safety Report 4999948-9 (Version None)
Quarter: 2006Q2

REPORT INFORMATION
  Report Type: 
  Country: None (occurrence: None)
  Receive Date: 20060510
  Receipt Date: 20060502
  Transmission Date: 20061013
  Serious: Yes (Death)
  Sender: FDA-Public Use
  Company Number: GXKR2006DE01628

PATIENT
  Age: 63 Year
  Sex: Male

DRUGS (1)
  1. DOXYCYCLINE+AMBROXOL [Suspect]
     Dates: start: 20060103, end: 20060104

REACTIONS (8)
  - ANAPHYLACTIC REACTION [None]
  - ANGIONEUROTIC OEDEMA [None]
  - BRAIN DAMAGE [None]
  - CARDIAC ARREST [None]
  - DRUG INEFFECTIVE [None]
  - LOSS OF CONSCIOUSNESS [None]
  - PNEUMONIA [None]
  - VENTRICULAR FIBRILLATION [None]
